FAERS Safety Report 5646357-5 (Version None)
Quarter: 2008Q1

REPORT INFORMATION
  Report Type: 
  Country: None (occurrence: None)
  Receive Date: 20080303
  Receipt Date: 20080225
  Transmission Date: 20080703
  Serious: Yes (Hospitalization, Disabling)
  Sender: FDA-Public Use
  Company Number: US-ELI_LILLY_AND_COMPANY-US_0508120942

PATIENT
  Sex: Female
  Weight: 86.168 kg

DRUGS (5)
  1. ZYPREXA [Suspect]
     Indication: DEPRESSION
     Dosage: UNK, UNKNOWN
     Dates: start: 20020201
  2. ZYPREXA [Suspect]
     Dosage: 10 MG, UNK
     Dates: start: 20040401, end: 20041101
  3. ZYPREXA [Suspect]
     Dosage: 10 MG, UNK
     Dates: start: 20050104, end: 20050201
  4. ABILIFY [Concomitant]
     Dates: start: 20060101
  5. RISPERDAL [Concomitant]
     Dates: start: 20050101

REACTIONS (3)
  - BLINDNESS [None]
  - DIABETES MELLITUS [None]
  - HYPERGLYCAEMIA [None]
